FAERS Safety Report 7895330-5 (Version None)
Quarter: 2011Q4

REPORT INFORMATION
  Report Type: 
  Country: None (occurrence: None)
  Receive Date: 20111106
  Receipt Date: 20110825
  Transmission Date: 20120403
  Serious: No
  Sender: FDA-Public Use
  Company Number: US-AMGEN-USASP2011043695

PATIENT
  Age: 6 Year
  Sex: Female

DRUGS (2)
  1. TREXALL [Concomitant]
     Dosage: 1 ML, QWK
     Dates: start: 20101201
  2. ENBREL [Suspect]
     Indication: JUVENILE ARTHRITIS
     Dosage: 25 MG, QWK
     Dates: start: 20110506

REACTIONS (6)
  - COUGH [None]
  - CHEST PAIN [None]
  - WHEEZING [None]
  - ARTHRITIS [None]
  - PYREXIA [None]
  - OROPHARYNGEAL PAIN [None]
